FAERS Safety Report 15458155 (Version 1)
Quarter: 2018Q4

REPORT INFORMATION
  Report Type: Spontaneous
  Country: JP (occurrence: JP)
  Receive Date: 20181003
  Receipt Date: 20181003
  Transmission Date: 20190204
  Serious: Yes (Disabling)
  Sender: FDA-Public Use
  Company Number: JP-TEVA-2018-JP-000419J

PATIENT
  Age: 52 Year
  Sex: Male
  Weight: 27 kg

DRUGS (4)
  1. LEVOFLOXACIN TABLET 250MG ^TEVA^ [Suspect]
     Active Substance: LEVOFLOXACIN
     Indication: URINARY TRACT INFECTION
     Dosage: 500 MILLIGRAM DAILY;
     Route: 048
     Dates: start: 20180128, end: 20180204
  2. PHENOBAL [Suspect]
     Active Substance: PHENOBARBITAL
     Indication: EPILEPSY
     Dosage: 80 MILLIGRAM DAILY;
     Route: 048
  3. ANHIBA [Concomitant]
     Active Substance: ACETAMINOPHEN
     Route: 065
  4. LANSOPRAZOLE OD [Concomitant]
     Active Substance: LANSOPRAZOLE
     Route: 048

REACTIONS (1)
  - Epilepsy [Recovered/Resolved]

NARRATIVE: CASE EVENT DATE: 20180128
